FAERS Safety Report 7523797-0 (Version None)
Quarter: 2011Q2

REPORT INFORMATION
  Report Type: 
  Country: None (occurrence: None)
  Receive Date: 20110603
  Receipt Date: 20110527
  Transmission Date: 20111010
  Serious: Yes (Hospitalization, Other)
  Sender: FDA-Public Use
  Company Number: US-US-EMD SERONO, INC.-7042112

PATIENT
  Sex: Female
  Weight: 56 kg

DRUGS (4)
  1. LONG ACTING INSULIN [Concomitant]
     Indication: BLOOD GLUCOSE INCREASED
  2. REBIF [Suspect]
     Route: 058
     Dates: start: 20110404
  3. LONG ACTING INSULIN [Concomitant]
     Indication: DIABETES MELLITUS
  4. REBIF [Suspect]
     Indication: MULTIPLE SCLEROSIS
     Dates: start: 20100804, end: 20101101

REACTIONS (2)
  - POSTERIOR REVERSIBLE ENCEPHALOPATHY SYNDROME [None]
  - BLOOD GLUCOSE ABNORMAL [None]
